FAERS Safety Report 18343001 (Version 1)
Quarter: 2020Q4

REPORT INFORMATION
  Report Type: Spontaneous
  Country: US (occurrence: US)
  Receive Date: 20201005
  Receipt Date: 20201005
  Transmission Date: 20210113
  Serious: No
  Sender: FDA-Public Use
  Company Number: US-AUROBINDO-AUR-APL-2020-013387

PATIENT
  Sex: Female
  Weight: 47.6 kg

DRUGS (7)
  1. SUMATRIPTAN TABLETS 100MG [Suspect]
     Active Substance: SUMATRIPTAN
     Dosage: 1 DOSAGE FORM, AS DIRECTED
     Route: 048
  2. SUMATRIPTAN TABLETS 100MG [Suspect]
     Active Substance: SUMATRIPTAN
     Dosage: 1 DOSAGE FORM, AS DIRECTED
     Route: 048
  3. SUMATRIPTAN TABLETS 100MG [Suspect]
     Active Substance: SUMATRIPTAN
     Dosage: 1 DOSAGE FORM, AS DIRECTED
     Route: 048
  4. SUMATRIPTAN TABLETS 100MG [Suspect]
     Active Substance: SUMATRIPTAN
     Dosage: 1 DOSAGE FORM, AS DIRECTED
     Route: 048
  5. SUMATRIPTAN TABLETS 100MG [Suspect]
     Active Substance: SUMATRIPTAN
     Indication: MIGRAINE
     Dosage: 1 DOSAGE FORM, AS DIRECTED
     Route: 048
  6. SUMATRIPTAN TABLETS 100MG [Suspect]
     Active Substance: SUMATRIPTAN
     Dosage: 1 DOSAGE FORM, AS DIRECTED
     Route: 048
  7. SUMATRIPTAN TABLETS 100MG [Suspect]
     Active Substance: SUMATRIPTAN
     Dosage: 1 DOSAGE FORM, AS DIRECTED
     Route: 048

REACTIONS (1)
  - Drug ineffective [Unknown]
